FAERS Safety Report 18796111 (Version 1)
Quarter: 2021Q1

REPORT INFORMATION
  Report Type: Spontaneous
  Country: US (occurrence: US)
  Receive Date: 20210127
  Receipt Date: 20210127
  Transmission Date: 20210419
  Serious: Yes (Other)
  Sender: FDA-Public Use
  Company Number: US-ENDO PHARMACEUTICALS INC-2020-005645

PATIENT
  Sex: Male

DRUGS (2)
  1. PERCOCET [Suspect]
     Active Substance: ACETAMINOPHEN\OXYCODONE HYDROCHLORIDE
     Indication: NEURALGIC AMYOTROPHY
     Dosage: UNK UNKNOWN, UNKNOWN
     Route: 065
     Dates: start: 2008
  2. OXYCONTIN [Suspect]
     Active Substance: OXYCODONE HYDROCHLORIDE
     Indication: NEURALGIC AMYOTROPHY
     Dosage: 60 MG, BID
     Route: 065
     Dates: start: 2008

REACTIONS (13)
  - Testicular disorder [Unknown]
  - Erectile dysfunction [Unknown]
  - Fatigue [Unknown]
  - Muscular weakness [Unknown]
  - Disturbance in attention [Unknown]
  - Polycythaemia [Unknown]
  - Depression [Unknown]
  - Semen volume decreased [Unknown]
  - Drug dependence [Not Recovered/Not Resolved]
  - Anxiety [Unknown]
  - Androgen deficiency [Unknown]
  - Libido decreased [Unknown]
  - Insomnia [Unknown]

NARRATIVE: CASE EVENT DATE: 2008
